FAERS Safety Report 6280416-1 (Version None)
Quarter: 2009Q3

REPORT INFORMATION
  Report Type: 
  Country: None (occurrence: None)
  Receive Date: 20090724
  Receipt Date: 20090717
  Transmission Date: 20100115
  Serious: Yes (Hospitalization)
  Sender: FDA-Public Use
  Company Number: GB-TEVA-199627USA

PATIENT
  Sex: Female

DRUGS (1)
  1. BISELECT [Suspect]
     Indication: ATRIAL FIBRILLATION

REACTIONS (6)
  - APHASIA [None]
  - BRAIN STEM SYNDROME [None]
  - MIGRAINE [None]
  - PARAESTHESIA [None]
  - PRURITUS [None]
  - RAYNAUD'S PHENOMENON [None]
